FAERS Safety Report 9225551 (Version 1)
Quarter: 2013Q2

REPORT INFORMATION
  Report Type: Spontaneous
  Country: US (occurrence: None)
  Receive Date: 20130410
  Receipt Date: 20130410
  Transmission Date: 20140414
  Serious: Yes (Other)
  Sender: FDA-Public Use
  Company Number: None

PATIENT
  Age: 59 Year
  Sex: Female
  Weight: 65.77 kg

DRUGS (1)
  1. METFORMIN [Suspect]
     Dosage: 1 TABLET, 2X DAILY WITH FOOD, PO
     Route: 048
     Dates: start: 20130310, end: 20130406

REACTIONS (11)
  - Vision blurred [None]
  - Chest pain [None]
  - Palpitations [None]
  - Myalgia [None]
  - Blood glucose increased [None]
  - Paraesthesia [None]
  - Flushing [None]
  - Headache [None]
  - Nausea [None]
  - Product substitution issue [None]
  - Feeling abnormal [None]
